FAERS Safety Report 4715857-4 (Version None)
Quarter: 2005Q3

REPORT INFORMATION
  Report Type: 
  Country: None (occurrence: None)
  Receive Date: 20050718
  Receipt Date: 20050504
  Transmission Date: 20060218
  Serious: Yes (Hospitalization, Disabling)
  Sender: FDA-Public Use
  Company Number: US-ROCHE-404024

PATIENT
  Age: 48 Year
  Sex: Male
  Weight: 77.1 kg

DRUGS (4)
  1. XELODA [Suspect]
     Dosage: THE PATIENT HAD RECEIVED FOUR CYCLES OF CAPECITABINE.TWO WEEKS TREATMENT FOLLOWED BY ONE WEEKS REST
     Route: 048
     Dates: start: 20041221, end: 20050407
  2. OXYCONTIN [Concomitant]
  3. PAXIL [Concomitant]
  4. PROTONIX [Concomitant]

REACTIONS (6)
  - AMNESIA [None]
  - BLINDNESS [None]
  - CONVULSION [None]
  - COORDINATION ABNORMAL [None]
  - ENCEPHALOPATHY [None]
  - NEUROTOXICITY [None]
